FAERS Safety Report 23431976 (Version 1)
Quarter: 2024Q1

REPORT INFORMATION
  Report Type: Spontaneous
  Country: US (occurrence: None)
  Receive Date: 20240122
  Receipt Date: 20240122
  Transmission Date: 20240409
  Serious: Yes (Hospitalization)
  Sender: FDA-Public Use
  Company Number: None

PATIENT
  Sex: Male

DRUGS (1)
  1. CAPECITABINE [Suspect]
     Active Substance: CAPECITABINE
     Indication: Oesophageal carcinoma
     Dosage: OTHER FREQUENCY : Q 12HRS;?TAKE 3 TABLETS BY MOUTH EVERY 12 HOURS ON DAYS 1 TO 14 OF A 21 DAY CYCLE
     Route: 048
     Dates: start: 20240110

REACTIONS (2)
  - Fatigue [None]
  - Increased need for sleep [None]
